FAERS Safety Report 9786141 (Version 2)
Quarter: 2014Q1

REPORT INFORMATION
  Report Type: Spontaneous
  Country: AU (occurrence: None)
  Receive Date: 20131224
  Receipt Date: 20140129
  Transmission Date: 20141002
  Serious: Yes (Hospitalization)
  Sender: FDA-Public Use
  Company Number: 2013AP010694

PATIENT
  Sex: Female

DRUGS (6)
  1. MONTELUKAST (MONTELUKAST) [Suspect]
     Indication: ASTHMA
     Route: 048
  2. IBUPROFEN (IBUPROFEN) [Concomitant]
  3. TRAMADOL (TRAMADOL) [Concomitant]
  4. SERETIDE (SERETIDE) [Concomitant]
  5. ATACAND (CANDESARTAN CILEXETIL) [Concomitant]
  6. MONTELUKAST (MONTELUKAST) [Concomitant]

REACTIONS (3)
  - Asthma [None]
  - Drug ineffective [None]
  - Product friable [None]
